FAERS Safety Report 21202253 (Version 2)
Quarter: 2023Q2

REPORT INFORMATION
  Report Type: Spontaneous
  Country: US (occurrence: US)
  Receive Date: 20220811
  Receipt Date: 20230614
  Transmission Date: 20230721
  Serious: Yes (Hospitalization)
  Sender: FDA-Public Use
  Company Number: US-AMERICAN REGENT INC-2022002258

PATIENT
  Age: 46 Year
  Sex: Female

DRUGS (1)
  1. VENOFER [Suspect]
     Active Substance: IRON SUCROSE
     Indication: Microcytic anaemia
     Dosage: UNK; 3 DOSES
     Route: 042

REACTIONS (1)
  - Brain oedema [Recovering/Resolving]
